FAERS Safety Report 7167180-9 (Version None)
Quarter: 2010Q4

REPORT INFORMATION
  Report Type: 
  Country: None (occurrence: None)
  Receive Date: 20101216
  Receipt Date: 20101203
  Transmission Date: 20110411
  Serious: Yes (Other)
  Sender: FDA-Public Use
  Company Number: PHHY2010DE84855

PATIENT
  Age: 42 Year
  Sex: Male

DRUGS (4)
  1. RASILEZ [Suspect]
     Indication: HYPERTENSION
     Dosage: 300 MG/DAY
     Dates: start: 20101001
  2. HYDROCHLOROTHIAZIDE [Suspect]
     Indication: HYPERTENSION
     Dosage: 12.5 MG/D
  3. ATACAND [Concomitant]
     Indication: HYPERTENSION
     Dosage: 32 MG/D
     Dates: start: 20100701
  4. AMLODIPINE [Concomitant]
     Indication: HYPERTENSION
     Dosage: 5 MG, BID
     Dates: start: 20101201

REACTIONS (2)
  - BLOOD PRESSURE INCREASED [None]
  - RENIN INCREASED [None]
